FAERS Safety Report 17193553 (Version 1)
Quarter: 2019Q4

REPORT INFORMATION
  Report Type: Report from Study
  Country: CA (occurrence: CA)
  Receive Date: 20191223
  Receipt Date: 20191223
  Transmission Date: 20200122
  Serious: Yes (Other)
  Sender: FDA-Public Use
  Company Number: CA-NALPROPION PHARMACEUTICALS INC.-2019-008726

PATIENT

DRUGS (5)
  1. CONTRAVE [Suspect]
     Active Substance: BUPROPION HYDROCHLORIDE\NALTREXONE HYDROCHLORIDE
     Dosage: STRENGTH:90 MG/ 8 MG, START DATE: APPROXIMATELY 11/APR/2019
     Route: 048
     Dates: start: 201904
  2. CONTRAVE [Suspect]
     Active Substance: BUPROPION HYDROCHLORIDE\NALTREXONE HYDROCHLORIDE
     Dosage: STRENGTH:90 MG/ 8 MG, START DATE: APPROXIMATELY 27/MAR/2019, END DATE: APPROXIMATELY 03/APR/2019
     Route: 048
     Dates: start: 201903, end: 201904
  3. CONTRAVE [Suspect]
     Active Substance: BUPROPION HYDROCHLORIDE\NALTREXONE HYDROCHLORIDE
     Dosage: STRENGTH:90 MG/ 8 MG, START DATE: APPROXIMATELY 04/APR/2019, END DATE: APPROXIMATELY 10/APR/2019
     Route: 048
     Dates: start: 201904, end: 201904
  4. CRESTOR [Concomitant]
     Active Substance: ROSUVASTATIN CALCIUM
     Indication: BLOOD CHOLESTEROL ABNORMAL
     Dosage: DAILY
     Route: 048
  5. CONTRAVE [Suspect]
     Active Substance: BUPROPION HYDROCHLORIDE\NALTREXONE HYDROCHLORIDE
     Indication: WEIGHT CONTROL
     Dosage: STRENGTH:90 MG/ 8 MG, START DATE: APPROXIMATELY 20/MAR/2019, END DATE: APPROXIMATELY 26/MAR/2019
     Route: 048
     Dates: start: 201903, end: 201903

REACTIONS (4)
  - Drug ineffective [Unknown]
  - Hunger [Not Recovered/Not Resolved]
  - Foot fracture [Unknown]
  - Constipation [Not Recovered/Not Resolved]

NARRATIVE: CASE EVENT DATE: 2019
